FAERS Safety Report 18326092 (Version 1)
Quarter: 2020Q3

REPORT INFORMATION
  Report Type: Spontaneous
  Country: IR (occurrence: IR)
  Receive Date: 20200929
  Receipt Date: 20200929
  Transmission Date: 20201103
  Serious: No
  Sender: FDA-Public Use
  Company Number: IR-LUPIN PHARMACEUTICALS INC.-2020-00722

PATIENT
  Age: 25 Year
  Sex: Female

DRUGS (1)
  1. AZITHROMYCIN TABLETS, 500 MG [Suspect]
     Active Substance: AZITHROMYCIN
     Indication: URETHRITIS CHLAMYDIAL
     Dosage: 1 GRAM, QD (TWO 500 MG TABLETS AT THE SAME TIME)
     Route: 065

REACTIONS (1)
  - Aphthous ulcer [Recovered/Resolved]
